FAERS Safety Report 10432686 (Version 2)
Quarter: 2014Q4

REPORT INFORMATION
  Report Type: Spontaneous
  Country: US (occurrence: None)
  Receive Date: 20140903
  Receipt Date: 20141031
  Transmission Date: 20150528
  Serious: Yes (Life-Threatening, Hospitalization, Other)
  Sender: FDA-Public Use
  Company Number: UTC-047357

PATIENT
  Age: 43 Year
  Sex: Female
  Weight: 56 kg

DRUGS (3)
  1. REMODULIN [Suspect]
     Active Substance: TREPROSTINIL
     Indication: PULMONARY ARTERIAL HYPERTENSION
     Dosage: 0.079 UG/KG, CONTINUING, IV DRIP
     Route: 041
     Dates: start: 20101118
  2. TRACLEER [Concomitant]
     Active Substance: BOSENTAN\BOSENTAN MONOHYDRATE
  3. REVATIO (SILDENAFIL CITRATE) [Concomitant]

REACTIONS (10)
  - Condition aggravated [None]
  - Thrombocytopenia [None]
  - Pulmonary arterial hypertension [None]
  - Anaemia [None]
  - Pleural effusion [None]
  - Lung transplant [None]
  - Hypotension [None]
  - Hypoxia [None]
  - Right ventricular failure [None]
  - Disease progression [None]

NARRATIVE: CASE EVENT DATE: 20140317
